FAERS Safety Report 6362240-4 (Version None)
Quarter: 2009Q3

REPORT INFORMATION
  Report Type: 
  Country: None (occurrence: None)
  Receive Date: 20090918
  Receipt Date: 20090531
  Transmission Date: 20100115
  Serious: No
  Sender: FDA-Public Use
  Company Number: US-ABBOTT-09P-163-0577058-00

PATIENT
  Sex: Female
  Weight: 69.916 kg

DRUGS (1)
  1. HUMIRA [Suspect]
     Indication: CROHN'S DISEASE
     Dates: start: 20090414

REACTIONS (4)
  - PAIN [None]
  - RASH PAPULAR [None]
  - URTICARIA [None]
  - WOUND SECRETION [None]
